FAERS Safety Report 9555494 (Version 3)
Quarter: 2013Q4

REPORT INFORMATION
  Report Type: Report from Study
  Country: GB (occurrence: GB)
  Receive Date: 20130926
  Receipt Date: 20131014
  Transmission Date: 20140711
  Serious: Yes (Death, Hospitalization)
  Sender: FDA-Public Use
  Company Number: GB-CELGENEUS-167-C4047-13082780

PATIENT
  Age: 54 Year
  Sex: Male
  Weight: 92.6 kg

DRUGS (6)
  1. CC-4047 [Suspect]
     Indication: PLASMA CELL MYELOMA
     Dosage: 4 MILLIGRAM
     Route: 048
     Dates: start: 20130529, end: 20130809
  2. DEXAMETHASONE [Concomitant]
     Indication: PLASMA CELL MYELOMA
     Dosage: 40 MILLIGRAM
     Route: 065
     Dates: start: 20130529, end: 20130809
  3. ASPIRINE [Concomitant]
     Indication: SUPPORTIVE CARE
     Dosage: 75 MILLIGRAM
     Route: 065
     Dates: start: 20130529, end: 20130809
  4. LANSOPRAZOLE [Concomitant]
     Indication: SUPPORTIVE CARE
     Dosage: 30 MILLIGRAM
     Route: 065
     Dates: start: 20130529, end: 20130809
  5. SEPTRIN [Concomitant]
     Indication: SUPPORTIVE CARE
     Dosage: 960 MILLIGRAM
     Route: 065
     Dates: start: 20130529, end: 20130809
  6. ACYCLOVIR [Concomitant]
     Indication: SUPPORTIVE CARE
     Dosage: 1200 MILLIGRAM
     Route: 065
     Dates: start: 20130529, end: 20130809

REACTIONS (2)
  - Pneumonia bacterial [Fatal]
  - Bacterial sepsis [Fatal]
